FAERS Safety Report 9720054 (Version 1)
Quarter: 2013Q4

REPORT INFORMATION
  Report Type: Spontaneous
  Country: US (occurrence: US)
  Receive Date: 20131128
  Receipt Date: 20131128
  Transmission Date: 20140711
  Serious: No
  Sender: FDA-Public Use
  Company Number: US-009507513-1311USA009476

PATIENT
  Age: 32 Year
  Sex: Female
  Weight: 146.49 kg

DRUGS (2)
  1. NEXPLANON [Suspect]
     Indication: CONTRACEPTION
     Dosage: 1 DF, UNDER THE SKIN OF THE LEFT ARM
     Route: 058
     Dates: start: 20130401
  2. CARBAMAZEPINE [Concomitant]
     Dosage: 400 MG DAILY

REACTIONS (7)
  - Unintended pregnancy [Unknown]
  - Haemorrhage [Unknown]
  - Breast tenderness [Unknown]
  - Nausea [Unknown]
  - Mood swings [Unknown]
  - Depression [Unknown]
  - Libido decreased [Unknown]
